FAERS Safety Report 10018309 (Version 2)
Quarter: 2014Q1

REPORT INFORMATION
  Report Type: Spontaneous
  Country: US (occurrence: US)
  Receive Date: 20140318
  Receipt Date: 20140318
  Transmission Date: 20141002
  Serious: Yes (Hospitalization)
  Sender: FDA-Public Use
  Company Number: US-BRISTOL-MYERS SQUIBB COMPANY-19950336

PATIENT
  Age: 58 Year
  Sex: Male

DRUGS (13)
  1. ERBITUX [Suspect]
     Indication: HEPATIC CANCER
     Dates: start: 20131203
  2. BENADRYL [Concomitant]
     Indication: PREMEDICATION
     Route: 042
  3. ATIVAN [Concomitant]
     Indication: PREMEDICATION
     Route: 042
  4. ATIVAN [Concomitant]
     Indication: PREMEDICATION
     Route: 042
  5. BYSTOLIC [Concomitant]
     Route: 048
  6. VITAMIN B12 [Concomitant]
     Route: 048
  7. VITAMIN B12 [Concomitant]
     Route: 048
  8. CYMBALTA [Concomitant]
     Route: 048
  9. CYMBALTA [Concomitant]
     Route: 048
  10. FOLIC ACID [Concomitant]
  11. ATORVASTATIN [Concomitant]
     Route: 048
  12. METFORMIN [Concomitant]
  13. TAMSULOSIN [Concomitant]
     Route: 048

REACTIONS (2)
  - Anaphylactic reaction [Recovered/Resolved]
  - Off label use [Unknown]
